FAERS Safety Report 4582709-2 (Version None)
Quarter: 2005Q1

REPORT INFORMATION
  Report Type: 
  Country: None (occurrence: None)
  Receive Date: 20050215
  Receipt Date: 20050208
  Transmission Date: 20050727
  Serious: Yes (Other)
  Sender: FDA-Public Use
  Company Number: GB-BRISTOL-MYERS SQUIBB COMPANY-12859302

PATIENT
  Sex: Male

DRUGS (1)
  1. PRAVASTATIN [Suspect]
     Dosage: INITIATED ON 10 MG IN MAY 2004; INCREASED TO 20 MG IN OCT 2004; INCREASED TO 40 MG IN NOV 2004
     Route: 048
     Dates: start: 20040501

REACTIONS (1)
  - GLYCOSYLATED HAEMOGLOBIN INCREASED [None]
